FAERS Safety Report 8565430-5 (Version None)
Quarter: 2012Q3

REPORT INFORMATION
  Report Type: 
  Country: None (occurrence: None)
  Receive Date: 20120803
  Receipt Date: 20120731
  Transmission Date: 20120928
  Serious: Yes (Other)
  Sender: FDA-Public Use
  Company Number: US-PFIZER INC-2012136307

PATIENT
  Sex: Female

DRUGS (1)
  1. EFFEXOR XR [Suspect]
     Dosage: 75 MG, 3X/DAY

REACTIONS (3)
  - MULTIPLE SCLEROSIS [None]
  - WITHDRAWAL SYNDROME [None]
  - NERVOUS SYSTEM DISORDER [None]
